FAERS Safety Report 8313409-0 (Version None)
Quarter: 2012Q1

REPORT INFORMATION
  Report Type: 
  Country: None (occurrence: None)
  Receive Date: 20120315
  Receipt Date: 20110402
  Transmission Date: 20120608
  Serious: No
  Sender: FDA-Public Use
  Company Number: PHHY2011US09108

PATIENT
  Age: 51 Year
  Sex: Female
  Weight: 55.3 kg

DRUGS (11)
  1. ASPIRIN [Concomitant]
  2. MACRODANTIN [Concomitant]
  3. LORAZEPAM [Concomitant]
  4. ACETAMINOPHEN [Concomitant]
  5. MACROBID [Concomitant]
  6. VITAMINS (NO INGREDIENTS/SUBSTANCES) [Concomitant]
  7. FLUOXETINE [Concomitant]
  8. VITAMIN D [Concomitant]
  9. GILENYA [Suspect]
     Indication: MULTIPLE SCLEROSIS
     Dosage: 0.5 MG, QD, ORAL
     Route: 048
     Dates: start: 20101206
  10. VITAMIN TAB [Concomitant]
  11. NITROFURANTOIN [Concomitant]

REACTIONS (6)
  - FATIGUE [None]
  - COUGH [None]
  - INCREASED APPETITE [None]
  - WHITE BLOOD CELL COUNT DECREASED [None]
  - DYSPHAGIA [None]
  - CONSTIPATION [None]
